FAERS Safety Report 11433856 (Version 1)
Quarter: 2015Q3

REPORT INFORMATION
  Report Type: Spontaneous
  Country: BR (occurrence: BR)
  Receive Date: 20150831
  Receipt Date: 20150831
  Transmission Date: 20151125
  Serious: Yes (Other)
  Sender: FDA-Public Use
  Company Number: BR-BAYER-2015-402860

PATIENT
  Age: 24 Year
  Sex: Female

DRUGS (4)
  1. FUROSEMIDE. [Suspect]
     Active Substance: FUROSEMIDE
  2. ERYTHROPOIETIN [Suspect]
     Active Substance: ERYTHROPOIETIN
  3. NIFEDIPINE. [Suspect]
     Active Substance: NIFEDIPINE
  4. METHYLDOPA. [Suspect]
     Active Substance: METHYLDOPA

REACTIONS (5)
  - Exposure during pregnancy [None]
  - Placental insufficiency [None]
  - Hypoglycaemia [None]
  - Breast engorgement [None]
  - Acute pulmonary oedema [None]
